FAERS Safety Report 23667590 (Version 2)
Quarter: 2024Q3

REPORT INFORMATION
  Report Type: Spontaneous
  Country: US (occurrence: US)
  Receive Date: 20240325
  Receipt Date: 20240913
  Transmission Date: 20241016
  Serious: Yes (Other)
  Sender: MERCK
  Company Number: US-009507513-2403USA006412

PATIENT
  Sex: Female

DRUGS (3)
  1. WELIREG [Suspect]
     Active Substance: BELZUTIFAN
     Indication: Renal cell carcinoma
     Dosage: 3 DOSAGE FORM, UNKNOWN FREQUENCY
     Route: 048
     Dates: start: 202402
  2. WELIREG [Suspect]
     Active Substance: BELZUTIFAN
     Dosage: 40 MILLIGRAM, BID
     Route: 048
  3. CANDESARTAN [Concomitant]
     Active Substance: CANDESARTAN
     Indication: Hypertension

REACTIONS (6)
  - Arthritis reactive [Unknown]
  - Upper respiratory tract infection [Unknown]
  - Product dose omission issue [Unknown]
  - Tendonitis [Recovering/Resolving]
  - Blood pressure increased [Unknown]
  - Hypersensitivity [Unknown]

NARRATIVE: CASE EVENT DATE: 20240101
